FAERS Safety Report 7471342-0 (Version None)
Quarter: 2011Q2

REPORT INFORMATION
  Report Type: 
  Country: None (occurrence: None)
  Receive Date: 20110510
  Receipt Date: 20110506
  Transmission Date: 20111010
  Serious: Yes (Disabling, Other)
  Sender: FDA-Public Use
  Company Number: US-MERCK-1012USA02888

PATIENT
  Age: 61 Year
  Sex: Female
  Weight: 70 kg

DRUGS (2)
  1. FOSAMAX PLUS D [Suspect]
     Indication: OSTEOPOROSIS
     Route: 048
     Dates: start: 20051001
  2. FOSAMAX [Suspect]
     Indication: OSTEOPENIA
     Route: 048
     Dates: start: 20020101, end: 20080220

REACTIONS (10)
  - TOOTH ABSCESS [None]
  - OSTEONECROSIS OF JAW [None]
  - OSTEOMYELITIS [None]
  - TOOTH DISORDER [None]
  - TOOTH INFECTION [None]
  - ORAL PAIN [None]
  - TYPE 2 DIABETES MELLITUS [None]
  - JAW DISORDER [None]
  - TENDON INJURY [None]
  - ABDOMINAL PAIN [None]
